FAERS Safety Report 23335787 (Version 1)
Quarter: 2023Q4

REPORT INFORMATION
  Report Type: Spontaneous
  Country: US (occurrence: US)
  Receive Date: 20231225
  Receipt Date: 20231225
  Transmission Date: 20240110
  Serious: Yes (Death, Other)
  Sender: FDA-Public Use
  Company Number: US-AVEO ONCOLOGY-2023-AVEO-US000991

PATIENT

DRUGS (12)
  1. FOTIVDA [Suspect]
     Active Substance: TIVOZANIB HYDROCHLORIDE
     Indication: Renal cell carcinoma
     Dosage: 0.89 MG, DAILY FOR 21 DAYS WITH 7 DAYS OFF (28-DAY CYCLE)
     Route: 048
  2. CALCITRIOL [Concomitant]
     Active Substance: CALCITRIOL
  3. FAMOTIDINE [Concomitant]
     Active Substance: FAMOTIDINE
  4. HYDROXYZINE [Concomitant]
     Active Substance: HYDROXYZINE HYDROCHLORIDE
  5. LOSARTAN [Concomitant]
     Active Substance: LOSARTAN
  6. NARCAN [Concomitant]
     Active Substance: NALOXONE HYDROCHLORIDE
  7. OPDIVO [Concomitant]
     Active Substance: NIVOLUMAB
  8. OXYCODONE [Concomitant]
     Active Substance: OXYCODONE
  9. PERCOCET [Concomitant]
     Active Substance: ACETAMINOPHEN\OXYCODONE HYDROCHLORIDE
  10. ROSUVASTATIN [Concomitant]
     Active Substance: ROSUVASTATIN
  11. SILDENAFIL [Concomitant]
     Active Substance: SILDENAFIL
  12. ZOFRAN [Concomitant]
     Active Substance: ONDANSETRON HYDROCHLORIDE

REACTIONS (1)
  - Death [Fatal]
